FAERS Safety Report 9193602 (Version 3)
Quarter: 2013Q2

REPORT INFORMATION
  Report Type: Spontaneous
  Country: JP (occurrence: JP)
  Receive Date: 20130327
  Receipt Date: 20130415
  Transmission Date: 20140414
  Serious: Yes (Other)
  Sender: FDA-Public Use
  Company Number: JP-JNJFOC-20130315408

PATIENT
  Age: 96 Year
  Sex: Male

DRUGS (7)
  1. REMINYL [Suspect]
     Indication: DEMENTIA ALZHEIMER^S TYPE
     Route: 048
     Dates: start: 20130221, end: 20130321
  2. WARFARIN POTASSIUM [Concomitant]
     Route: 048
  3. MAGLAX [Concomitant]
     Route: 048
  4. RENIVACE [Concomitant]
     Route: 048
  5. ALENAPION [Concomitant]
     Route: 048
  6. VESICARE [Concomitant]
     Route: 048
  7. ALDIOXA [Concomitant]
     Route: 048

REACTIONS (1)
  - Parkinsonian gait [Unknown]
